FAERS Safety Report 8088576 (Version 8)
Quarter: 2014Q1

REPORT INFORMATION
  Report Type: Spontaneous
  Country: US (occurrence: US)
  Receive Date: 20110812
  Receipt Date: 20140127
  Transmission Date: 20141002
  Serious: Yes (Hospitalization, Other)
  Sender: FDA-Public Use
  Company Number: US-009507513-1108USA01228

PATIENT
  Sex: Female
  Weight: 61.24 kg

DRUGS (4)
  1. FOSAMAX [Suspect]
     Indication: OSTEOPOROSIS
     Dosage: 70MG QW
     Route: 048
     Dates: start: 2009, end: 20100313
  2. FOSAMAX [Suspect]
     Indication: OSTEOPENIA
     Dosage: 70 MG, QW
     Route: 048
     Dates: start: 20070905, end: 20080122
  3. FOSAMAX [Suspect]
     Dosage: 70 MG, QW
     Route: 048
     Dates: start: 20080221, end: 20080903
  4. FOSAMAX [Suspect]
     Indication: OSTEOPOROSIS
     Dosage: 70 MG, QW
     Route: 048
     Dates: start: 20081007, end: 20090622

REACTIONS (39)
  - Fracture nonunion [Unknown]
  - Femur fracture [Unknown]
  - Femur fracture [Recovered/Resolved]
  - Fall [Unknown]
  - Hip fracture [Recovered/Resolved]
  - Device breakage [Unknown]
  - Femur fracture [Unknown]
  - Fracture nonunion [Recovering/Resolving]
  - Adverse event [Unknown]
  - Tooth disorder [Unknown]
  - Tooth disorder [Unknown]
  - Tooth disorder [Unknown]
  - Tooth disorder [Unknown]
  - Tooth disorder [Unknown]
  - Impaired healing [Unknown]
  - Epicondylitis [Unknown]
  - Herpes virus infection [Unknown]
  - Depressed mood [Unknown]
  - Osteoarthritis [Unknown]
  - Hypokalaemia [Unknown]
  - Cyst [Unknown]
  - Pubis fracture [Unknown]
  - Tooth fracture [Unknown]
  - Toothache [Unknown]
  - Anaemia [Unknown]
  - Sinus disorder [Unknown]
  - Bacterial disease carrier [Unknown]
  - Stress urinary incontinence [Unknown]
  - Large intestine polyp [Unknown]
  - Fall [Unknown]
  - Joint injury [Unknown]
  - Groin pain [Unknown]
  - Seroma [Unknown]
  - Osteoarthritis [Unknown]
  - Tendon disorder [Unknown]
  - Bursitis [Unknown]
  - Breast cyst [Unknown]
  - Pain in jaw [Unknown]
  - Gastrooesophageal reflux disease [Unknown]
